FAERS Safety Report 5683931-4 (Version None)
Quarter: 2008Q1

REPORT INFORMATION
  Report Type: 
  Country: None (occurrence: None)
  Receive Date: 20080328
  Receipt Date: 20080318
  Transmission Date: 20080703
  Serious: Yes (Other)
  Sender: FDA-Public Use
  Company Number: PHBS2008CN03415

PATIENT

DRUGS (1)
  1. SEBIVO [Suspect]
     Dosage: MATERNAL DOSE: 600 MG QD
     Route: 064
     Dates: start: 20070601, end: 20071003

REACTIONS (3)
  - CAESAREAN SECTION [None]
  - DRUG EXPOSURE DURING PREGNANCY [None]
  - PREMATURE BABY [None]
